FAERS Safety Report 9789355 (Version 2)
Quarter: 2013Q4

REPORT INFORMATION
  Report Type: Spontaneous
  Country: EE (occurrence: EE)
  Receive Date: 20131231
  Receipt Date: 20131231
  Transmission Date: 20140711
  Serious: Yes (Other)
  Sender: FDA-Public Use
  Company Number: EE-BAXTER-2013BAX048638

PATIENT
  Age: 52 Year
  Sex: Male

DRUGS (17)
  1. EXTRANEAL [Suspect]
     Indication: PERITONEAL DIALYSIS
     Route: 033
     Dates: start: 20130429
  2. EXTRANEAL [Suspect]
     Indication: RENAL FAILURE CHRONIC
  3. PHYSIONEAL 40 GLUKOSE 13,6 MG/ML [Suspect]
     Indication: PERITONEAL DIALYSIS
     Route: 033
     Dates: start: 20130429
  4. PHYSIONEAL 40 GLUKOSE 13,6 MG/ML [Suspect]
     Indication: RENAL FAILURE CHRONIC
  5. AMLODIPINE [Suspect]
     Indication: PRODUCT USED FOR UNKNOWN INDICATION
  6. MAREVAN [Concomitant]
     Indication: PRODUCT USED FOR UNKNOWN INDICATION
  7. NEORAL [Concomitant]
     Indication: PRODUCT USED FOR UNKNOWN INDICATION
  8. ISOPTIN [Concomitant]
     Indication: PRODUCT USED FOR UNKNOWN INDICATION
  9. DIGOXIN [Concomitant]
     Indication: PRODUCT USED FOR UNKNOWN INDICATION
  10. ROCALTROL [Concomitant]
     Indication: PRODUCT USED FOR UNKNOWN INDICATION
  11. MICARDIS [Concomitant]
     Indication: PRODUCT USED FOR UNKNOWN INDICATION
  12. ALLOPURINOL [Concomitant]
     Indication: PRODUCT USED FOR UNKNOWN INDICATION
  13. FERRUM-LEC [Concomitant]
     Indication: PRODUCT USED FOR UNKNOWN INDICATION
  14. OMSAL [Concomitant]
     Indication: PRODUCT USED FOR UNKNOWN INDICATION
  15. CAL.SINE [Concomitant]
     Indication: PRODUCT USED FOR UNKNOWN INDICATION
  16. GASEC [Concomitant]
     Indication: PRODUCT USED FOR UNKNOWN INDICATION
  17. ESSENTIALE [Concomitant]
     Indication: PRODUCT USED FOR UNKNOWN INDICATION

REACTIONS (2)
  - Hypertensive crisis [Recovered/Resolved]
  - Peritonitis bacterial [Unknown]
